FAERS Safety Report 8029795-5 (Version None)
Quarter: 2012Q1

REPORT INFORMATION
  Report Type: 
  Country: None (occurrence: None)
  Receive Date: 20120109
  Receipt Date: 20111228
  Transmission Date: 20120608
  Serious: Yes (Hospitalization, Other)
  Sender: FDA-Public Use
  Company Number: US-ELI_LILLY_AND_COMPANY-US201108000323

PATIENT
  Sex: Female

DRUGS (19)
  1. LASIX [Concomitant]
     Dosage: UNK, QD
  2. DIGOXIN [Concomitant]
  3. VITAMIN TAB [Concomitant]
  4. XANAX [Concomitant]
     Dosage: UNK, QD
  5. ISOSORBIDE MONONITRATE [Concomitant]
  6. LEVOTHYROXINE SODIUM [Concomitant]
  7. PREDNISONE TAB [Concomitant]
  8. ROFLUMILAST [Concomitant]
  9. FORTEO [Suspect]
     Dosage: 20 UG, QD
     Route: 065
  10. POTASSIUM CHLORIDE [Concomitant]
  11. CARISOPRODOL [Concomitant]
  12. ALLOPURINOL [Concomitant]
  13. PANTOPRAZOLE [Concomitant]
  14. HYDROCODONE [Concomitant]
  15. NEXIUM [Concomitant]
     Dosage: UNK, QD
  16. FORTEO [Suspect]
     Indication: OSTEOPOROSIS
     Dosage: 20 UG, QD
     Route: 065
  17. FORTEO [Suspect]
     Dosage: 20 UG, QD
     Route: 065
     Dates: end: 20110801
  18. FORTEO [Suspect]
     Dosage: 20 UG, QD
     Route: 065
     Dates: start: 20111109
  19. PLAVIX [Concomitant]

REACTIONS (12)
  - HOSPITALISATION [None]
  - MALAISE [None]
  - HEAD INJURY [None]
  - PHARYNGEAL OEDEMA [None]
  - INTENTIONAL DRUG MISUSE [None]
  - BLOOD PRESSURE DECREASED [None]
  - CARDIAC FAILURE CONGESTIVE [None]
  - DRUG DOSE OMISSION [None]
  - FALL [None]
  - BLOOD TEST ABNORMAL [None]
  - PNEUMONIA [None]
  - CLAVICLE FRACTURE [None]
